FAERS Safety Report 21175151 (Version 4)
Quarter: 2022Q4

REPORT INFORMATION
  Report Type: Spontaneous
  Country: US (occurrence: US)
  Receive Date: 20220805
  Receipt Date: 20221117
  Transmission Date: 20230113
  Serious: No
  Sender: FDA-Public Use
  Company Number: US-GLAXOSMITHKLINE-US2022AMR114203

PATIENT
  Sex: Female

DRUGS (2)
  1. ZEJULA [Suspect]
     Active Substance: NIRAPARIB
     Indication: Ovarian cancer
     Dosage: 300 MG, QD
  2. ZEJULA [Suspect]
     Active Substance: NIRAPARIB
     Dosage: 100 MG, QD
     Dates: start: 20221003

REACTIONS (6)
  - Constipation [Unknown]
  - Nausea [Unknown]
  - Coronavirus infection [Unknown]
  - Platelet count decreased [Not Recovered/Not Resolved]
  - Hepatic enzyme decreased [Unknown]
  - Haemoglobin decreased [Unknown]
